FAERS Safety Report 21005816 (Version 2)
Quarter: 2023Q2

REPORT INFORMATION
  Report Type: Spontaneous
  Country: US (occurrence: None)
  Receive Date: 20220624
  Receipt Date: 20230525
  Transmission Date: 20230722
  Serious: Yes (Death, Other)
  Sender: FDA-Public Use
  Company Number: 2022A229297

PATIENT
  Sex: Female

DRUGS (7)
  1. NEXIUM [Suspect]
     Active Substance: ESOMEPRAZOLE MAGNESIUM
     Indication: Gastrooesophageal reflux disease
     Route: 048
     Dates: start: 200101, end: 201501
  2. NEXIUM [Suspect]
     Active Substance: ESOMEPRAZOLE MAGNESIUM
     Indication: Gastrooesophageal reflux disease
     Dosage: 40.0MG UNKNOWN
     Route: 048
     Dates: start: 2001, end: 2015
  3. ATORVASTATIN [Concomitant]
     Active Substance: ATORVASTATIN
     Indication: Blood cholesterol
  4. FUROSEMIDE [Concomitant]
     Active Substance: FUROSEMIDE
     Indication: Drug abuse
  5. METOPROLOL [Concomitant]
     Active Substance: METOPROLOL
     Indication: Blood pressure abnormal
  6. ACETAMINOPHEN [Concomitant]
     Active Substance: ACETAMINOPHEN
     Indication: Pain
  7. IBUPROFEN [Concomitant]
     Active Substance: IBUPROFEN
     Indication: Pain

REACTIONS (3)
  - Death [Fatal]
  - Gastric cancer [Not Recovered/Not Resolved]
  - Chronic kidney disease [Unknown]
